FAERS Safety Report 5233048-8 (Version None)
Quarter: 2007Q1

REPORT INFORMATION
  Report Type: 
  Country: None (occurrence: None)
  Receive Date: 20070207
  Receipt Date: 20070129
  Transmission Date: 20070707
  Serious: Yes (Hospitalization, Other)
  Sender: FDA-Public Use
  Company Number: ES-BOEHRINGER INGELHEIM PHARMACEUTICALS, INC.-2007-DE-00495GD

PATIENT
  Sex: Male

DRUGS (6)
  1. ASPIRIN [Suspect]
  2. TIOTROPIUM-BROMIDE [Suspect]
     Indication: ANALGESIC ASTHMA SYNDROME
     Route: 055
  3. BUDESONIDE [Suspect]
     Indication: ANALGESIC ASTHMA SYNDROME
     Route: 045
  4. FLUTICASONE PROPIONATE [Suspect]
     Indication: ANALGESIC ASTHMA SYNDROME
     Route: 055
  5. SALMETEROL [Suspect]
     Indication: ANALGESIC ASTHMA SYNDROME
     Route: 055
  6. ZAFIRLUKAST [Suspect]
     Indication: ANALGESIC ASTHMA SYNDROME
     Dates: start: 20031201

REACTIONS (8)
  - ABDOMINAL PAIN [None]
  - ANOREXIA [None]
  - ASTHMA [None]
  - EOSINOPHILIA [None]
  - ERECTILE DYSFUNCTION [None]
  - MALAISE [None]
  - RHINITIS [None]
  - WEIGHT DECREASED [None]
